FAERS Safety Report 16530939 (Version 2)
Quarter: 2019Q4

REPORT INFORMATION
  Report Type: Report from Study
  Country: None (occurrence: US)
  Receive Date: 20190704
  Receipt Date: 20191003
  Transmission Date: 20200122
  Serious: Yes (Hospitalization, Other)
  Sender: FDA-Public Use
  Company Number: US-ABBVIE-19K-163-2839881-00

PATIENT
  Sex: Male

DRUGS (4)
  1. VENCLEXTA [Suspect]
     Active Substance: VENETOCLAX
     Route: 048
     Dates: start: 2019, end: 2019
  2. VENCLEXTA [Suspect]
     Active Substance: VENETOCLAX
     Route: 048
     Dates: start: 2019
  3. VENCLEXTA [Suspect]
     Active Substance: VENETOCLAX
     Indication: ACUTE MYELOID LEUKAEMIA
     Route: 048
     Dates: start: 201905, end: 2019
  4. IDHIFA [Concomitant]
     Active Substance: ENASIDENIB MESYLATE
     Indication: ACUTE MYELOID LEUKAEMIA
     Route: 048
     Dates: start: 20190325

REACTIONS (14)
  - Red blood cell count decreased [Unknown]
  - Loss of consciousness [Unknown]
  - Dehydration [Unknown]
  - Dizziness [Unknown]
  - Bone pain [Unknown]
  - Stomatitis [Unknown]
  - Dysuria [Unknown]
  - Bone marrow disorder [Unknown]
  - Platelet count decreased [Unknown]
  - Vomiting [Unknown]
  - Blood pressure fluctuation [Unknown]
  - Fatigue [Unknown]
  - Asthenia [Unknown]
  - White blood cell count decreased [Unknown]

NARRATIVE: CASE EVENT DATE: 2019
